FAERS Safety Report 7335311-3 (Version None)
Quarter: 2011Q1

REPORT INFORMATION
  Report Type: 
  Country: None (occurrence: None)
  Receive Date: 20110307
  Receipt Date: 20110225
  Transmission Date: 20110831
  Serious: Yes (Hospitalization, Other)
  Sender: FDA-Public Use
  Company Number: PHHY2010JP88327

PATIENT
  Age: 74 Year
  Sex: Male

DRUGS (11)
  1. MECOBALAMIN [Concomitant]
     Dosage: UNK
     Dates: start: 20101210, end: 20101217
  2. TROXIPIDE [Concomitant]
     Dosage: UNK
     Dates: start: 20101210, end: 20101217
  3. PIOGLITAZONE HYDROCHLORIDE [Concomitant]
     Dosage: UNK
  4. METOCLOPRAMIDE HCL [Concomitant]
     Dosage: UNK
  5. PILSICAINIDE HYDROCHLORIDE [Concomitant]
     Dosage: UNK
  6. SULPIRIDE [Concomitant]
     Dosage: UNK
  7. CANDESARTAN CILEXETIL [Concomitant]
     Dosage: UNK
  8. WARFARIN POTASSIUM [Concomitant]
     Dosage: UNK
  9. FAMVIR [Suspect]
     Indication: HERPES ZOSTER
     Dosage: 1500 MG DAILY
     Route: 048
     Dates: start: 20101210, end: 20101217
  10. LOXOPROFEN SODIUM [Concomitant]
     Dosage: UNK
     Dates: start: 20071210, end: 20101217
  11. TICLOPIDINE HYDROCHLORIDE [Concomitant]
     Dosage: UNK

REACTIONS (3)
  - MALAISE [None]
  - DIZZINESS [None]
  - DECREASED APPETITE [None]
